FAERS Safety Report 10579834 (Version 2)
Quarter: 2014Q4

REPORT INFORMATION
  Report Type: Spontaneous
  Country: US (occurrence: US)
  Receive Date: 20141112
  Receipt Date: 20141112
  Transmission Date: 20150529
  Serious: Yes (Hospitalization, Other)
  Sender: FDA-Public Use
  Company Number: US-GLAXOSMITHKLINE-A0832890A

PATIENT
  Age: 64 Year
  Sex: Female

DRUGS (8)
  1. DYAZIDE [Concomitant]
     Active Substance: HYDROCHLOROTHIAZIDE\TRIAMTERENE
  2. AVANDIA [Suspect]
     Active Substance: ROSIGLITAZONE MALEATE
     Indication: TYPE 2 DIABETES MELLITUS
     Dosage: 2 MG, BID
     Route: 048
     Dates: start: 1999, end: 2007
  3. TOPROL XL [Concomitant]
     Active Substance: METOPROLOL SUCCINATE
  4. TRIAMTERENE AND HYDROCHLOROTHIAZIDE [Concomitant]
     Active Substance: HYDROCHLOROTHIAZIDE\TRIAMTERENE
  5. GLYBURIDE. [Concomitant]
     Active Substance: GLYBURIDE
  6. MONOPRIL [Concomitant]
     Active Substance: FOSINOPRIL SODIUM
  7. FOSINOPRIL [Concomitant]
     Active Substance: FOSINOPRIL
  8. INDERAL [Concomitant]
     Active Substance: PROPRANOLOL HYDROCHLORIDE
     Dates: end: 20030720

REACTIONS (3)
  - Vertebral artery occlusion [Unknown]
  - Amnesia [Unknown]
  - Transient ischaemic attack [Not Recovered/Not Resolved]

NARRATIVE: CASE EVENT DATE: 20030721
